FAERS Safety Report 4850994-5 (Version None)
Quarter: 2005Q4

REPORT INFORMATION
  Report Type: 
  Country: None (occurrence: None)
  Receive Date: 20051212
  Receipt Date: 20050927
  Transmission Date: 20060501
  Serious: Yes (Hospitalization)
  Sender: FDA-Public Use
  Company Number: US-MERCK-0509USA04487

PATIENT
  Age: 57 Year
  Sex: Female

DRUGS (3)
  1. VIOXX [Suspect]
     Indication: PAIN
     Route: 048
     Dates: start: 20000627, end: 20010222
  2. VIOXX [Suspect]
     Indication: NECK PAIN
     Route: 048
     Dates: start: 20000627, end: 20010222
  3. ASPIRIN [Concomitant]
     Route: 065

REACTIONS (4)
  - DEPRESSION [None]
  - MYOCARDIAL INFARCTION [None]
  - POLYTRAUMATISM [None]
  - VENTRICULAR FIBRILLATION [None]
